FAERS Safety Report 5569565-0 (Version None)
Quarter: 2007Q4

REPORT INFORMATION
  Report Type: 
  Country: None (occurrence: None)
  Receive Date: 20071218
  Receipt Date: 20071205
  Transmission Date: 20080405
  Serious: Yes (Other)
  Sender: FDA-Public Use
  Company Number: 18029

PATIENT
  Age: 15 Year
  Sex: Female

DRUGS (3)
  1. ETOPOSIDE [Suspect]
  2. CISPLATIN [Suspect]
     Indication: GERM CELL CANCER
  3. BLEOMYCIN [Suspect]
     Indication: GERM CELL CANCER

REACTIONS (5)
  - CEREBRAL VENOUS THROMBOSIS [None]
  - HEADACHE [None]
  - HEMIPLEGIA [None]
  - PAPILLOEDEMA [None]
  - PARTIAL SEIZURES [None]
